FAERS Safety Report 4521319-X (Version None)
Quarter: 2004Q4

REPORT INFORMATION
  Report Type: 
  Country: None (occurrence: None)
  Receive Date: 20041208
  Receipt Date: 20041130
  Transmission Date: 20050328
  Serious: Yes (Other)
  Sender: FDA-Public Use
  Company Number: PHBS2004JP16096

PATIENT
  Sex: Female

DRUGS (1)
  1. TEGRETOL [Suspect]
     Indication: BACK PAIN
     Dosage: 2 TABLETS, BID
     Route: 048
     Dates: start: 20030101

REACTIONS (5)
  - ALOPECIA [None]
  - ERYTHEMA [None]
  - FACIAL PARESIS [None]
  - MUSCLE DISORDER [None]
  - RHABDOMYOLYSIS [None]
